FAERS Safety Report 21256784 (Version 3)
Quarter: 2022Q4

REPORT INFORMATION
  Report Type: Report from Study
  Country: BR (occurrence: BR)
  Receive Date: 20220826
  Receipt Date: 20221025
  Transmission Date: 20230113
  Serious: Yes (Other)
  Sender: FDA-Public Use
  Company Number: BR-NOVARTISPH-NVSC2022BR164254

PATIENT
  Sex: Male

DRUGS (5)
  1. COSENTYX [Suspect]
     Active Substance: SECUKINUMAB
     Indication: Psoriatic arthropathy
     Dosage: 300 MG, QW (ON WEEKS 0, 1, 2, 3, 4 AND THEN EVERY 28 DAYS) (NOT INITIATED)
     Route: 058
  2. COSENTYX [Suspect]
     Active Substance: SECUKINUMAB
     Dosage: UNK, QW (ATTACK DOSE) (ONCE A MONTH NOT STARTED)
     Route: 065
     Dates: start: 20220720, end: 20220817
  3. COSENTYX [Suspect]
     Active Substance: SECUKINUMAB
     Dosage: UNK, QMO
     Route: 065
  4. COSENTYX [Suspect]
     Active Substance: SECUKINUMAB
     Dosage: UNK, QW
     Route: 065
  5. COSENTYX [Suspect]
     Active Substance: SECUKINUMAB
     Dosage: UNK (LAST APPLICATION)
     Route: 065
     Dates: start: 20220917

REACTIONS (11)
  - Multiple fractures [Unknown]
  - Femur fracture [Unknown]
  - Crepitations [Unknown]
  - Resorption bone increased [Unknown]
  - Osteoarthritis [Unknown]
  - Arthritis [Unknown]
  - Chondropathy [Unknown]
  - Insomnia [Unknown]
  - Injury [Unknown]
  - Product prescribing error [Not Recovered/Not Resolved]
  - Inappropriate schedule of product administration [Unknown]
